FAERS Safety Report 9096600 (Version 2)
Quarter: 2013Q1

REPORT INFORMATION
  Report Type: Spontaneous
  Country: JP (occurrence: JP)
  Receive Date: 20130211
  Receipt Date: 20130218
  Transmission Date: 20140127
  Serious: Yes (Other)
  Sender: FDA-Public Use
  Company Number: PHHY2013JP011731

PATIENT
  Sex: 0

DRUGS (4)
  1. HYDRALAZINE [Suspect]
     Dosage: UNK UKN, UNK
     Route: 064
  2. THIAMYLAL [Concomitant]
     Dosage: UNK UKN, UNK
     Route: 064
  3. ROCURONIUM [Concomitant]
     Dosage: UNK UKN, UNK
     Route: 064
  4. SEVOFLURANE [Concomitant]
     Dosage: UNK UKN, UNK
     Route: 064

REACTIONS (6)
  - Apgar score low [Unknown]
  - Low birth weight baby [Unknown]
  - Meconium ileus [Unknown]
  - Intestinal perforation [Unknown]
  - Platelet count decreased [Unknown]
  - Foetal exposure timing unspecified [Unknown]
